FAERS Safety Report 12435001 (Version 1)
Quarter: 2016Q2

REPORT INFORMATION
  Report Type: Spontaneous
  Country: US (occurrence: US)
  Receive Date: 20160603
  Receipt Date: 20160603
  Transmission Date: 20160815
  Serious: No
  Sender: FDA-Public Use
  Company Number: US-ROCHE-1718027

PATIENT
  Age: 7 Year
  Sex: Female

DRUGS (7)
  1. DILANTIN [Concomitant]
     Active Substance: PHENYTOIN
  2. TRILEPTAL [Concomitant]
     Active Substance: OXCARBAZEPINE
  3. VIMPAT [Concomitant]
     Active Substance: LACOSAMIDE
  4. KLONOPIN [Suspect]
     Active Substance: CLONAZEPAM
     Indication: SEIZURE
     Route: 065
  5. KEPPRA [Concomitant]
     Active Substance: LEVETIRACETAM
  6. FYCOMPA [Concomitant]
     Active Substance: PERAMPANEL
  7. DEPAKOTE [Concomitant]
     Active Substance: DIVALPROEX SODIUM

REACTIONS (1)
  - Seizure [Unknown]
